FAERS Safety Report 5747598-9 (Version None)
Quarter: 2008Q2

REPORT INFORMATION
  Report Type: 
  Country: None (occurrence: None)
  Receive Date: 20080523
  Receipt Date: 20080513
  Transmission Date: 20081010
  Serious: Yes (Hospitalization)
  Sender: FDA-Public Use
  Company Number: FR-BAXTER-2008BH005207

PATIENT
  Age: 74 Year
  Sex: Female

DRUGS (11)
  1. EXTRANEAL [Suspect]
     Indication: PERITONEAL DIALYSIS
     Route: 033
     Dates: start: 20070822
  2. NUTRINEAL PD4 VIAFLEX [Suspect]
     Indication: PERITONEAL DIALYSIS
     Dosage: DOSE UNIT:UNKNOWN
     Route: 033
     Dates: start: 20070822
  3. PHYSIONEAL, UNSPECIFIED PRODUCT VIAFLEX [Suspect]
     Indication: PERITONEAL DIALYSIS
     Dosage: DOSE UNIT:UNKNOWN
     Route: 033
     Dates: start: 20070822
  4. LASILIX [Concomitant]
  5. COZAAR [Concomitant]
  6. TARDYFERON /GFR/ [Concomitant]
  7. PREVISCAN [Concomitant]
  8. AMLOR [Concomitant]
  9. SECTRAL [Concomitant]
  10. CALCIDIA [Concomitant]
  11. UN-ALFA [Concomitant]

REACTIONS (5)
  - ATRIAL FIBRILLATION [None]
  - CATHETER SITE INFECTION [None]
  - FUNGAL TEST POSITIVE [None]
  - PERITONITIS [None]
  - PULMONARY OEDEMA [None]
